FAERS Safety Report 7999151-4 (Version None)
Quarter: 2011Q4

REPORT INFORMATION
  Report Type: 
  Country: None (occurrence: None)
  Receive Date: 20111221
  Receipt Date: 20111213
  Transmission Date: 20120403
  Serious: Yes (Death)
  Sender: FDA-Public Use
  Company Number: US-MYLANLABS-2011S1024450

PATIENT
  Age: 78 Year
  Sex: Male

DRUGS (13)
  1. PROCHLORPERAZINE MALEATE [Suspect]
     Dosage: EVERY 4-6 HOURS AS NEEDED
  2. NITROSTAT [Concomitant]
     Indication: CHEST PAIN
     Dosage: EVERY 5 MINUTES X 3 AS NEEDED FOR CHEST PAIN AND SHORTNESS OF BREATH
     Route: 060
  3. LORAZEPAM [Suspect]
     Indication: RESTLESSNESS
     Dosage: EVERY 4 HOURS
  4. FUROSEMIDE [Suspect]
  5. PROCHLORPERAZINE MALEATE [Suspect]
     Indication: VOMITING
     Dosage: EVERY 4-6 HOURS AS NEEDED
  6. OMEPRAZOLE [Suspect]
  7. SIMETHICONE [Concomitant]
     Indication: ABDOMINAL DISTENSION
     Dosage: 3 TIMES A DAY AND AT NIGHT AS NEEDED FOR ABDOMINAL BLOATING AND GAS
     Route: 048
  8. NIFEDIPINE [Concomitant]
  9. PROCHLORPERAZINE MALEATE [Suspect]
     Indication: NAUSEA
     Dosage: EVERY 4-6 HOURS AS NEEDED
  10. PROCHLORPERAZINE MALEATE [Suspect]
     Dosage: EVERY 4-6 HOURS AS NEEDED
  11. GLIPIZIDE [Suspect]
  12. ACETAMINOPHEN AND HYDROCODONE BITARTRATE [Concomitant]
     Indication: PAIN
     Dosage: 5MG/325MG - 1 - 2 TABLETS EVERY 4 HOURS AS NEEDED
  13. SPIRONOLACTONE [Suspect]

REACTIONS (1)
  - DEATH [None]
